FAERS Safety Report 8770773 (Version 2)
Quarter: 2012Q4

REPORT INFORMATION
  Report Type: 
  Country: FR (occurrence: FR)
  Receive Date: 20120906
  Receipt Date: 20121018
  Transmission Date: 20130627
  Serious: Yes (Hospitalization, Other)
  Sender: FDA-Public Use
  Company Number: FR-MERCK-1208FRA011744

PATIENT
  Age: 66 Year
  Sex: Female

DRUGS (7)
  1. VICTRELIS [Suspect]
     Indication: HEPATITIS C
     Dosage: 800 mg, tid
     Route: 048
     Dates: start: 20120504, end: 20120810
  2. COPEGUS [Concomitant]
     Indication: HEPATITIS C
     Dosage: 1000 mg, qd
     Route: 048
     Dates: start: 20120406, end: 20120705
  3. COPEGUS [Concomitant]
     Dosage: 600 mg, qd
     Dates: start: 20120705, end: 20120810
  4. PEGASYS [Concomitant]
     Indication: HEPATITIS C
     Dosage: 180 Microgram, UNK
     Route: 058
     Dates: start: 20120406, end: 20120810
  5. NEUPOGEN [Concomitant]
     Indication: NEUTROPENIA
     Dosage: 300 Microgram, UNK
     Route: 058
     Dates: start: 20120621, end: 20120810
  6. NEORECORMON [Concomitant]
     Indication: ANAEMIA
     Dosage: 30000 IU, UNK
     Route: 058
     Dates: start: 20120612, end: 20120810
  7. TARDYFERON [Concomitant]
     Indication: ANAEMIA
     Dosage: 1 DF, qd
     Route: 048
     Dates: start: 20120701, end: 20120810

REACTIONS (3)
  - Toxic skin eruption [Recovered/Resolved]
  - Anaemia [Unknown]
  - Drug reaction with eosinophilia and systemic symptoms [Recovered/Resolved]
